FAERS Safety Report 6328151-5 (Version None)
Quarter: 2009Q3

REPORT INFORMATION
  Report Type: 
  Country: None (occurrence: None)
  Receive Date: 20090825
  Receipt Date: 20090126
  Transmission Date: 20100115
  Serious: No
  Sender: FDA-Public Use
  Company Number: US-ABBOTT-09P-163-0500193-00

PATIENT
  Sex: Male
  Weight: 88.53 kg

DRUGS (4)
  1. SYNTHROID [Suspect]
     Indication: HYPOTHYROIDISM
     Dates: start: 20080501
  2. SYNTHROID [Suspect]
  3. PREDNISONE TAB [Suspect]
     Indication: POLYMYOSITIS
     Dosage: 1 IN 1 D TAPERING DOSE
     Dates: start: 20080801
  4. PREDNISONE TAB [Suspect]
     Dosage: 1 IN 1 D TAPERING DOSE
     Dates: start: 20090101

REACTIONS (3)
  - BALANCE DISORDER [None]
  - JOINT STIFFNESS [None]
  - POLYMYOSITIS [None]
